FAERS Safety Report 19300557 (Version 1)
Quarter: 2021Q2

REPORT INFORMATION
  Report Type: Spontaneous
  Country: ES (occurrence: ES)
  Receive Date: 20210525
  Receipt Date: 20210525
  Transmission Date: 20210717
  Serious: Yes (Other)
  Sender: FDA-Public Use
  Company Number: ES-PFIZER INC-2021539069

PATIENT
  Age: 16 Year
  Sex: Male

DRUGS (2)
  1. LEVETIRACETAM. [Suspect]
     Active Substance: LEVETIRACETAM
     Indication: EPILEPSY
     Dosage: 1750 MILLIGRAM, 2X/DAY (BID)
  2. VALPROIC ACID. [Concomitant]
     Active Substance: VALPROIC ACID
     Indication: EPILEPSY
     Dosage: 600 MILLIGRAM, 2X/DAY (BID)

REACTIONS (6)
  - Product use issue [Unknown]
  - Rash [Unknown]
  - Epilepsy [Unknown]
  - COVID-19 [Unknown]
  - Generalised tonic-clonic seizure [Unknown]
  - Overdose [Unknown]
